FAERS Safety Report 15768851 (Version 2)
Quarter: 2019Q1

REPORT INFORMATION
  Report Type: Report from Study
  Country: US (occurrence: US)
  Receive Date: 20181228
  Receipt Date: 20190117
  Transmission Date: 20190417
  Serious: Yes (Hospitalization)
  Sender: FDA-Public Use
  Company Number: US-AMGEN-USASL2018184589

PATIENT
  Age: 37 Year
  Sex: Male

DRUGS (1)
  1. REPATHA [Suspect]
     Active Substance: EVOLOCUMAB
     Indication: CARDIAC FAILURE
     Dosage: UNK, Q2WK
     Route: 065

REACTIONS (1)
  - Adrenomegaly [Recovered/Resolved]

NARRATIVE: CASE EVENT DATE: 201812
